FAERS Safety Report 4986397-2 (Version None)
Quarter: 2006Q2

REPORT INFORMATION
  Report Type: 
  Country: None (occurrence: None)
  Receive Date: 20060428
  Receipt Date: 20060418
  Transmission Date: 20061013
  Serious: Yes (Life-Threatening, Hospitalization)
  Sender: FDA-Public Use
  Company Number: JP-JNJFOC-20060403726

PATIENT
  Age: 80 Year
  Sex: Male

DRUGS (10)
  1. OFLOCET [Suspect]
     Indication: ORCHITIS
     Route: 048
     Dates: start: 20060124, end: 20060215
  2. OFLOCET [Suspect]
     Indication: PROSTATITIS
     Route: 048
     Dates: start: 20060124, end: 20060215
  3. HYTACAND [Concomitant]
     Route: 048
  4. HYTACAND [Concomitant]
     Indication: CARDIOVASCULAR DISORDER
     Route: 048
  5. ZANIDIP [Concomitant]
     Indication: CARDIOVASCULAR DISORDER
     Route: 048
  6. SERECOR [Concomitant]
     Indication: CARDIOVASCULAR DISORDER
     Route: 048
  7. SERETIDE [Concomitant]
     Route: 055
  8. SERETIDE [Concomitant]
     Indication: ASTHMA
     Route: 055
  9. VENTOLIN [Concomitant]
     Indication: ASTHMA
     Route: 055
  10. XALATAN [Concomitant]
     Indication: GLAUCOMA
     Route: 047

REACTIONS (2)
  - ACQUIRED HAEMOPHILIA [None]
  - HAEMATOMA [None]
